FAERS Safety Report 17177372 (Version 2)
Quarter: 2020Q1

REPORT INFORMATION
  Report Type: Report from Study
  Country: US (occurrence: US)
  Receive Date: 20191219
  Receipt Date: 20200224
  Transmission Date: 20200409
  Serious: Yes (Other)
  Sender: FDA-Public Use
  Company Number: US-ASTELLAS-2019US011970

PATIENT
  Sex: Male

DRUGS (1)
  1. ENZALUTAMIDE [Suspect]
     Active Substance: ENZALUTAMIDE
     Indication: PROSTATE CANCER
     Route: 048
     Dates: start: 20190211

REACTIONS (5)
  - Deafness [Not Recovered/Not Resolved]
  - Insomnia [Recovering/Resolving]
  - Rhinorrhoea [Unknown]
  - Somnolence [Not Recovered/Not Resolved]
  - Lacrimation increased [Unknown]
